FAERS Safety Report 6641013-9 (Version None)
Quarter: 2010Q1

REPORT INFORMATION
  Report Type: 
  Country: None (occurrence: None)
  Receive Date: 20100318
  Receipt Date: 20100312
  Transmission Date: 20100710
  Serious: Yes (Life-Threatening, Hospitalization)
  Sender: FDA-Public Use
  Company Number: B0639453A

PATIENT
  Age: 54 Year
  Sex: Female

DRUGS (5)
  1. AUGMENTIN [Suspect]
     Indication: PAROTITIS
     Route: 048
     Dates: start: 20081201, end: 20081229
  2. MICARDIS [Concomitant]
     Route: 065
  3. ABUFENE [Concomitant]
     Route: 065
  4. LINSEED OIL [Concomitant]
     Route: 065
  5. SOLUPRED [Concomitant]
     Indication: PAROTITIS
     Route: 065
     Dates: start: 20081201

REACTIONS (12)
  - ABDOMINAL DISTENSION [None]
  - AURICULAR SWELLING [None]
  - CHEST DISCOMFORT [None]
  - DIARRHOEA [None]
  - DISBACTERIOSIS [None]
  - DYSPHAGIA [None]
  - DYSPNOEA [None]
  - EYELID OEDEMA [None]
  - FACE OEDEMA [None]
  - RASH PAPULAR [None]
  - URTICARIA [None]
  - WHEEZING [None]
